FAERS Safety Report 19373266 (Version 1)
Quarter: 2021Q2

REPORT INFORMATION
  Report Type: Spontaneous
  Country: US (occurrence: US)
  Receive Date: 20210604
  Receipt Date: 20210604
  Transmission Date: 20210717
  Serious: Yes (Hospitalization, Other)
  Sender: FDA-Public Use
  Company Number: US-TEVA-2021-US-1917465

PATIENT
  Age: 78 Year
  Sex: Male
  Weight: 89.36 kg

DRUGS (1)
  1. GRANIX [Suspect]
     Active Substance: TBO-FILGRASTIM
     Route: 065

REACTIONS (3)
  - Cardiac disorder [Unknown]
  - Renal injury [Unknown]
  - Hospitalisation [Unknown]
